FAERS Safety Report 10768798 (Version 1)
Quarter: 2015Q1

REPORT INFORMATION
  Report Type: Report from Study
  Country: US (occurrence: None)
  Receive Date: 20150204
  Receipt Date: 20150204
  Transmission Date: 20150721
  Serious: Yes (Other)
  Sender: FDA-Public Use
  Company Number: 2014SA175507

PATIENT
  Age: 52 Year
  Sex: Female

DRUGS (6)
  1. BETASERON [Concomitant]
     Active Substance: INTERFERON BETA-1B
  2. AVONEX [Concomitant]
     Active Substance: INTERFERON BETA-1A
  3. AUBAGIO [Suspect]
     Active Substance: TERIFLUNOMIDE
     Indication: MULTIPLE SCLEROSIS
     Route: 048
     Dates: start: 20141128
  4. COPAXONE [Concomitant]
     Active Substance: GLATIRAMER ACETATE
  5. TYSABRI [Concomitant]
     Active Substance: NATALIZUMAB
  6. REBIF [Concomitant]
     Active Substance: INTERFERON BETA-1A

REACTIONS (8)
  - Myalgia [None]
  - Alopecia [None]
  - Frustration [None]
  - Muscular weakness [None]
  - Abasia [None]
  - Movement disorder [None]
  - Micturition urgency [None]
  - Fall [None]
